FAERS Safety Report 13652859 (Version 1)
Quarter: 2017Q2

REPORT INFORMATION
  Report Type: Spontaneous
  Country: US (occurrence: US)
  Receive Date: 20170614
  Receipt Date: 20170614
  Transmission Date: 20170830
  Serious: No
  Sender: FDA-Public Use
  Company Number: US-ROCHE-1306947

PATIENT
  Sex: Female

DRUGS (2)
  1. XELODA [Suspect]
     Active Substance: CAPECITABINE
     Dosage: AT NIGHT, 14 DAYS ON THEN 7 DAYS OFF
     Route: 048
     Dates: start: 20131011
  2. XELODA [Suspect]
     Active Substance: CAPECITABINE
     Indication: OESOPHAGEAL CARCINOMA
     Dosage: IN THE MORNING, 14 DAYS ON THEN 7 DAYS OFF
     Route: 048
     Dates: start: 20131011

REACTIONS (1)
  - Paraesthesia [Unknown]
